FAERS Safety Report 4352654-6 (Version None)
Quarter: 2004Q2

REPORT INFORMATION
  Report Type: 
  Country: None (occurrence: None)
  Receive Date: 20040429
  Receipt Date: 20040415
  Transmission Date: 20050107
  Serious: Yes (Hospitalization)
  Sender: FDA-Public Use
  Company Number: 2004-UK-00269UK

PATIENT
  Age: 41 Year
  Sex: Female

DRUGS (2)
  1. NEVIRAPINE (EU/1/97/055/001) (NEVIRAPINE) (TA) (NEVIRAPINE) [Suspect]
     Indication: HIV INFECTION
     Dosage: 200MG BD (TWICE DAILY) PO
     Route: 048
     Dates: start: 20030801, end: 20030903
  2. COMBIVIR [Concomitant]

REACTIONS (10)
  - CHEILITIS [None]
  - DECREASED APPETITE [None]
  - FEELING COLD [None]
  - HEADACHE [None]
  - ODYNOPHAGIA [None]
  - RASH PRURITIC [None]
  - STEVENS-JOHNSON SYNDROME [None]
  - SWELLING FACE [None]
  - VOMITING [None]
  - WEIGHT DECREASED [None]
